FAERS Safety Report 6443994-5 (Version None)
Quarter: 2009Q4

REPORT INFORMATION
  Report Type: 
  Country: None (occurrence: None)
  Receive Date: 20091116
  Receipt Date: 20091116
  Transmission Date: 20100525
  Serious: Yes (Hospitalization)
  Sender: FDA-Public Use
  Company Number: None

PATIENT
  Age: 55 Year
  Sex: Female
  Weight: 71 kg

DRUGS (2)
  1. PHENERGAN HCL [Suspect]
     Indication: NAUSEA
     Dosage: 25 MG IV, X1 DOSE
     Route: 042
     Dates: start: 20091008, end: 20091008
  2. PHENERGAN HCL [Suspect]
     Indication: VOMITING
     Dosage: 25 MG IV, X1 DOSE
     Route: 042
     Dates: start: 20091008, end: 20091008

REACTIONS (5)
  - DEPRESSED LEVEL OF CONSCIOUSNESS [None]
  - HYPOXIA [None]
  - MUSCLE RIGIDITY [None]
  - OXYGEN SATURATION DECREASED [None]
  - TREMOR [None]
